FAERS Safety Report 13461106 (Version 1)
Quarter: 2017Q2

REPORT INFORMATION
  Report Type: Spontaneous
  Country: US (occurrence: US)
  Receive Date: 20170419
  Receipt Date: 20170419
  Transmission Date: 20170830
  Serious: Yes (Disabling, Other)
  Sender: FDA-Public Use
  Company Number: None

PATIENT
  Age: 61 Year
  Sex: Male

DRUGS (2)
  1. CLOTRIMAZOLE. [Suspect]
     Active Substance: CLOTRIMAZOLE
     Indication: TINEA CRURIS
     Dosage: ?          OTHER STRENGTH:PERCENT;QUANTITY:45 GRAMS;?
     Route: 061
     Dates: start: 20170402, end: 20170404
  2. FU5 [Suspect]
     Active Substance: FLUOROURACIL

REACTIONS (3)
  - Genital ulceration [None]
  - Accidental exposure to product [None]
  - Haemorrhage [None]

NARRATIVE: CASE EVENT DATE: 20170404
